FAERS Safety Report 5015165-0 (Version None)
Quarter: 2006Q2

REPORT INFORMATION
  Report Type: 
  Country: None (occurrence: None)
  Receive Date: 20060530
  Receipt Date: 20060511
  Transmission Date: 20061013
  Serious: Yes (Life-Threatening, Hospitalization, Other)
  Sender: FDA-Public Use
  Company Number: GBWYE616411MAY06

PATIENT
  Age: 23 Year
  Sex: Female

DRUGS (7)
  1. MYAMBUTOL [Suspect]
     Indication: LYMPH NODE TUBERCULOSIS
     Dosage: 900MG 047
     Dates: start: 20060309, end: 20060325
  2. MYAMBUTOL [Suspect]
     Indication: LYMPH NODE TUBERCULOSIS
     Dosage: 900MG 047
     Dates: start: 20060328
  3. RIFATER [Suspect]
     Indication: LYMPH NODE TUBERCULOSIS
     Dosage: 5 TABS 047
     Dates: start: 20060309, end: 20060325
  4. RIFATER [Suspect]
     Indication: LYMPH NODE TUBERCULOSIS
     Dosage: 5 TABS 047
     Dates: start: 20060328
  5. AZITHROMYCIN [Concomitant]
  6. PYRIDOXINE HCL [Concomitant]
  7. SEPTRA [Concomitant]

REACTIONS (6)
  - DIZZINESS [None]
  - HEADACHE [None]
  - PRURITUS [None]
  - PYREXIA [None]
  - SWELLING FACE [None]
  - SYNCOPE [None]
